FAERS Safety Report 4304982-8 (Version None)
Quarter: 2004Q1

REPORT INFORMATION
  Report Type: 
  Country: None (occurrence: None)
  Receive Date: 20040226
  Receipt Date: 20040128
  Transmission Date: 20041129
  Serious: No
  Sender: FDA-Public Use
  Company Number: US-GLAXOSMITHKLINE-A0495333A

PATIENT
  Sex: Female

DRUGS (5)
  1. WELLBUTRIN XL [Suspect]
     Indication: FIBROMYALGIA
     Dosage: 1560MG PER DAY
     Route: 048
  2. THYROID TAB [Concomitant]
  3. ESTROGEN [Concomitant]
  4. SOMA [Concomitant]
  5. LASIX [Concomitant]

REACTIONS (9)
  - ABDOMINAL PAIN UPPER [None]
  - FLUID RETENTION [None]
  - HEADACHE [None]
  - INSOMNIA [None]
  - JAW DISORDER [None]
  - NAUSEA [None]
  - PAIN IN JAW [None]
  - PHARMACEUTICAL PRODUCT COMPLAINT [None]
  - WEIGHT INCREASED [None]
